FAERS Safety Report 5066308-4 (Version None)
Quarter: 2006Q3

REPORT INFORMATION
  Report Type: 
  Country: None (occurrence: None)
  Receive Date: 20060706
  Receipt Date: 20051207
  Transmission Date: 20061208
  Serious: No
  Sender: FDA-Public Use
  Company Number: 2005-04773

PATIENT
  Age: 36 Year
  Sex: Female

DRUGS (3)
  1. PROGESTERONE IN OIL INJ [Suspect]
     Indication: IN VITRO FERTILISATION
     Dosage: SEE IMAGE
     Route: 030
     Dates: start: 20050901, end: 20050901
  2. PROGESTERONE IN OIL INJ [Suspect]
     Indication: IN VITRO FERTILISATION
     Dosage: SEE IMAGE
     Route: 030
     Dates: start: 20050901, end: 20051013
  3. PROGESTERONE IN OIL INJ [Suspect]
     Indication: IN VITRO FERTILISATION
     Dosage: SEE IMAGE
     Route: 030
     Dates: start: 20051013, end: 20051030

REACTIONS (3)
  - ABORTION INDUCED [None]
  - DRUG INEFFECTIVE [None]
  - VAGINAL HAEMORRHAGE [None]
